APPROVED DRUG PRODUCT: FLURANDRENOLIDE
Active Ingredient: FLURANDRENOLIDE
Strength: 0.05%
Dosage Form/Route: LOTION;TOPICAL
Application: A087203 | Product #001
Applicant: ALPHARMA US PHARMACEUTICALS DIVISION
Approved: Apr 29, 1982 | RLD: No | RS: No | Type: DISCN